FAERS Safety Report 10477254 (Version 2)
Quarter: 2014Q3

REPORT INFORMATION
  Report Type: Spontaneous
  Country: DE (occurrence: DE)
  Receive Date: 20140926
  Receipt Date: 20140926
  Transmission Date: 20150326
  Serious: Yes (Hospitalization, Other)
  Sender: FDA-Public Use
  Company Number: DE-ABBVIE-14K-062-1269505-00

PATIENT
  Age: 75 Year
  Sex: Female

DRUGS (16)
  1. PANTOZOL [Concomitant]
     Active Substance: PANTOPRAZOLE SODIUM
     Indication: PRODUCT USED FOR UNKNOWN INDICATION
     Dosage: AT MORNING, 1-0-0
  2. DECORTIN H [Concomitant]
     Active Substance: PREDNISOLONE
     Indication: PRODUCT USED FOR UNKNOWN INDICATION
     Dosage: AT MORNING, 1-0-0
  3. MTX [Suspect]
     Active Substance: METHOTREXATE SODIUM
     Indication: PRODUCT USED FOR UNKNOWN INDICATION
     Dates: start: 2005, end: 2006
  4. MOVICOL [Concomitant]
     Active Substance: POLYETHYLENE GLYCOL 3350\POTASSIUM CHLORIDE\SODIUM BICARBONATE\SODIUM CHLORIDE
     Indication: PRODUCT USED FOR UNKNOWN INDICATION
  5. FOLIC ACID. [Concomitant]
     Active Substance: FOLIC ACID
     Indication: PRODUCT USED FOR UNKNOWN INDICATION
     Dosage: 1-0-0
  6. MTX [Suspect]
     Active Substance: METHOTREXATE SODIUM
     Dates: start: 2006, end: 200805
  7. LISIBETA [Concomitant]
     Indication: PRODUCT USED FOR UNKNOWN INDICATION
     Dosage: 0.5-0-0.5
  8. INNOHEP [Concomitant]
     Active Substance: TINZAPARIN SODIUM
     Indication: PRODUCT USED FOR UNKNOWN INDICATION
     Dosage: 1-0-0
     Route: 058
  9. KEVATRIL [Concomitant]
     Active Substance: GRANISETRON HYDROCHLORIDE
     Indication: PRODUCT USED FOR UNKNOWN INDICATION
  10. HUMIRA [Suspect]
     Active Substance: ADALIMUMAB
     Indication: RHEUMATOID ARTHRITIS
     Route: 058
     Dates: start: 20081111, end: 201407
  11. AMLOBETA BESILAT [Concomitant]
     Indication: PRODUCT USED FOR UNKNOWN INDICATION
     Dosage: AT NIGHT, 0-0-1
  12. CALCIUM D3 [Concomitant]
     Active Substance: CALCIUM\CHOLECALCIFEROL
     Indication: PRODUCT USED FOR UNKNOWN INDICATION
     Dosage: AT MORNING, 1-0-0
  13. ALLOPURINOL. [Concomitant]
     Active Substance: ALLOPURINOL
     Indication: PRODUCT USED FOR UNKNOWN INDICATION
     Dosage: 0-0-0.5
  14. TORASEMID [Concomitant]
     Active Substance: TORSEMIDE
     Indication: PRODUCT USED FOR UNKNOWN INDICATION
     Dosage: 0.5-0-0
  15. RAMIPRIL. [Concomitant]
     Active Substance: RAMIPRIL
     Indication: PRODUCT USED FOR UNKNOWN INDICATION
  16. COTRIM D.S. [Concomitant]
     Active Substance: SULFAMETHOXAZOLE\TRIMETHOPRIM
     Indication: PRODUCT USED FOR UNKNOWN INDICATION
     Dosage: 1-0-1

REACTIONS (29)
  - Abdominal hernia [Unknown]
  - Left ventricular hypertrophy [Unknown]
  - Rash papular [Unknown]
  - B-cell lymphoma [Unknown]
  - General physical health deterioration [Unknown]
  - Pericardial effusion [Unknown]
  - Blood bilirubin increased [Unknown]
  - Peripheral swelling [Unknown]
  - Blood creatinine increased [Unknown]
  - Spinal osteoarthritis [Unknown]
  - Skin burning sensation [Unknown]
  - Pulmonary embolism [Unknown]
  - Obesity [Unknown]
  - C-reactive protein increased [Unknown]
  - Blood folate increased [Unknown]
  - Pericarditis [Unknown]
  - Intertrigo candida [Unknown]
  - Dizziness [Unknown]
  - Pulmonary hypertension [Unknown]
  - Abdominal discomfort [Unknown]
  - Nausea [Unknown]
  - Joint swelling [Unknown]
  - Blood uric acid increased [Unknown]
  - PO2 increased [Unknown]
  - Reticulocyte count decreased [Unknown]
  - Abdominal pain upper [Unknown]
  - PCO2 increased [Unknown]
  - Hypoventilation [Unknown]
  - Rash pustular [Unknown]

NARRATIVE: CASE EVENT DATE: 2014
